FAERS Safety Report 4746472-4 (Version None)
Quarter: 2005Q3

REPORT INFORMATION
  Report Type: 
  Country: None (occurrence: None)
  Receive Date: 20050815
  Receipt Date: 20050801
  Transmission Date: 20060218
  Serious: Yes (Other)
  Sender: FDA-Public Use
  Company Number: US_0508120529

PATIENT
  Age: 63 Year
  Sex: Female
  Weight: 45 kg

DRUGS (5)
  1. FORTEO [Suspect]
     Indication: OSTEOPOROSIS
     Dosage: 20 UG/L DAY
     Dates: start: 20041201
  2. OMEPRAZOLE [Concomitant]
  3. DOMPERIDONE [Concomitant]
  4. LEVOTHYROXINE SODIUM [Concomitant]
  5. CALCIUM CARBONATE + VITAMIN D [Concomitant]

REACTIONS (1)
  - HYPERCALCAEMIA [None]
